FAERS Safety Report 6980430-4 (Version None)
Quarter: 2010Q3

REPORT INFORMATION
  Report Type: 
  Country: None (occurrence: None)
  Receive Date: 20100914
  Receipt Date: 20100813
  Transmission Date: 20110219
  Serious: Yes (Other)
  Sender: FDA-Public Use
  Company Number: US-ABBOTT-10P-163-0661537-00

PATIENT
  Sex: Male
  Weight: 59.02 kg

DRUGS (5)
  1. DEPAKOTE [Suspect]
     Indication: CONVULSION
     Route: 048
     Dates: start: 20020724
  2. DEPAKOTE [Suspect]
     Route: 048
     Dates: start: 20080101
  3. CARNITOR [Concomitant]
     Indication: MEDICAL DIET
     Route: 048
  4. MULTI-VITAMIN [Concomitant]
     Indication: VITAMIN SUPPLEMENTATION
     Route: 048
  5. DIASTAT [Concomitant]
     Indication: CONVULSION
     Route: 054

REACTIONS (2)
  - DRUG INEFFECTIVE [None]
  - GRAND MAL CONVULSION [None]
